FAERS Safety Report 20732278 (Version 1)
Quarter: 2022Q2

REPORT INFORMATION
  Report Type: Report from Study
  Country: US (occurrence: US)
  Receive Date: 20220420
  Receipt Date: 20220420
  Transmission Date: 20220721
  Serious: Yes (Death, Hospitalization)
  Sender: FDA-Public Use
  Company Number: US-BAYER-2022A055455

PATIENT
  Age: 82 Year
  Sex: Male
  Weight: 74.83 kg

DRUGS (3)
  1. ADEMPAS [Suspect]
     Active Substance: RIOCIGUAT
     Indication: Pulmonary arterial hypertension
     Dosage: UNK
     Dates: start: 20170914
  2. ADEMPAS [Suspect]
     Active Substance: RIOCIGUAT
     Indication: Pulmonary arterial hypertension
     Dosage: 2.5 MG, TID
     Route: 048
  3. ELIQUIS [Concomitant]
     Active Substance: APIXABAN

REACTIONS (3)
  - Death [Fatal]
  - Fall [None]
  - Cerebral haemorrhage [None]

NARRATIVE: CASE EVENT DATE: 20220408
